FAERS Safety Report 8918254 (Version 1)
Quarter: 2012Q4

REPORT INFORMATION
  Report Type: 
  Country: US (occurrence: US)
  Receive Date: 20121120
  Receipt Date: 20121120
  Transmission Date: 20130627
  Serious: No
  Sender: FDA-Public Use
  Company Number: US-ASTRAZENECA-2012SE25070

PATIENT
  Age: 49 Year
  Sex: Female
  Weight: 108.9 kg

DRUGS (5)
  1. NEXIUM [Suspect]
     Indication: GASTROOESOPHAGEAL REFLUX DISEASE
     Route: 048
  2. NEXIUM [Suspect]
     Indication: GASTROOESOPHAGEAL REFLUX DISEASE
     Route: 048
  3. NEXIUM [Suspect]
     Indication: GASTROOESOPHAGEAL REFLUX DISEASE
     Route: 048
  4. PAIN RELIEVERS [Concomitant]
     Indication: BACK PAIN
  5. SLEEPING PILLS [Concomitant]

REACTIONS (13)
  - Abdominal distension [Unknown]
  - Weight increased [Unknown]
  - Dyspnoea [Unknown]
  - Cough [Unknown]
  - Choking [Unknown]
  - Inflammation [Unknown]
  - Gastritis [Unknown]
  - Eructation [Unknown]
  - Flatulence [Unknown]
  - Insomnia [Unknown]
  - Eructation [Unknown]
  - Gastrointestinal pain [Unknown]
  - Intentional drug misuse [Unknown]
